FAERS Safety Report 8483033-8 (Version None)
Quarter: 2012Q3

REPORT INFORMATION
  Report Type: 
  Country: None (occurrence: None)
  Receive Date: 20120702
  Receipt Date: 20120627
  Transmission Date: 20120928
  Serious: Yes (Other)
  Sender: FDA-Public Use
  Company Number: CA-ABBOTT-12P-028-0948974-00

PATIENT
  Sex: Female
  Weight: 54.026 kg

DRUGS (1)
  1. HUMIRA [Suspect]
     Indication: CROHN'S DISEASE
     Route: 058
     Dates: start: 20080318

REACTIONS (3)
  - DRUG INEFFECTIVE [None]
  - INTESTINAL RESECTION [None]
  - CROHN'S DISEASE [None]
